FAERS Safety Report 5892342-8 (Version None)
Quarter: 2008Q3

REPORT INFORMATION
  Report Type: 
  Country: None (occurrence: None)
  Receive Date: 20080922
  Receipt Date: 20080922
  Transmission Date: 20090109
  Serious: Yes (Disabling, Other)
  Sender: FDA-Public Use
  Company Number: None

PATIENT
  Age: 38 Year
  Sex: Female
  Weight: 68.9467 kg

DRUGS (2)
  1. WARFARIN SODIUM [Suspect]
     Indication: THROMBOSIS
     Dosage: ONE TABLET EVERYDAY PO
     Route: 048
  2. LEVOTHYROXINE SODIUM [Suspect]
     Indication: THYROID DISORDER
     Dosage: ONE TABLET EVERYDAY PO
     Route: 048

REACTIONS (4)
  - DRUG DISPENSING ERROR [None]
  - EMOTIONAL DISTRESS [None]
  - MEDICATION ERROR [None]
  - MENOPAUSE [None]
